FAERS Safety Report 23267689 (Version 1)
Quarter: 2023Q4

REPORT INFORMATION
  Report Type: Spontaneous
  Country: US (occurrence: None)
  Receive Date: 20231205
  Receipt Date: 20231205
  Transmission Date: 20240110
  Serious: Yes (Life-Threatening, Disabling)
  Sender: FDA-Public Use
  Company Number: None

PATIENT
  Age: 55 Year
  Sex: Male
  Weight: 61.69 kg

DRUGS (2)
  1. LIPITOR [Suspect]
     Active Substance: ATORVASTATIN CALCIUM
     Indication: Blood cholesterol increased
     Dosage: 1 PILLS 1 A DAY MOUTH
     Route: 048
     Dates: start: 20210910, end: 20231103
  2. LISINOPRIL [Concomitant]
     Active Substance: LISINOPRIL

REACTIONS (5)
  - Fall [None]
  - Gait inability [None]
  - Aphasia [None]
  - Loss of consciousness [None]
  - Cerebrovascular accident [None]

NARRATIVE: CASE EVENT DATE: 20231103
